FAERS Safety Report 8077529-0 (Version None)
Quarter: 2012Q1

REPORT INFORMATION
  Report Type: 
  Country: None (occurrence: None)
  Receive Date: 20120127
  Receipt Date: 20120123
  Transmission Date: 20120608
  Serious: Yes (Death, Other)
  Sender: FDA-Public Use
  Company Number: US-TEVA-310400USA

PATIENT
  Sex: Male

DRUGS (1)
  1. ETOPOSIDE [Suspect]
     Indication: SMALL INTESTINE CARCINOMA
     Route: 042

REACTIONS (1)
  - SMALL INTESTINE CARCINOMA METASTATIC [None]
